FAERS Safety Report 6979727-3 (Version None)
Quarter: 2010Q3

REPORT INFORMATION
  Report Type: 
  Country: None (occurrence: None)
  Receive Date: 20100913
  Receipt Date: 20100726
  Transmission Date: 20110219
  Serious: Yes (Other)
  Sender: FDA-Public Use
  Company Number: PHHY2010GB49071

PATIENT
  Age: 88 Year
  Sex: Male

DRUGS (1)
  1. RIVASTIGMINE [Suspect]
     Indication: DEMENTIA
     Dosage: 1.5 MG TO 3 MG

REACTIONS (6)
  - CRYING [None]
  - EXCORIATION [None]
  - FALL [None]
  - MIDDLE INSOMNIA [None]
  - MOANING [None]
  - RAPID EYE MOVEMENTS SLEEP ABNORMAL [None]
